FAERS Safety Report 14559091 (Version 5)
Quarter: 2018Q3

REPORT INFORMATION
  Report Type: Spontaneous
  Country: US (occurrence: US)
  Receive Date: 20180221
  Receipt Date: 20180926
  Transmission Date: 20181010
  Serious: Yes (Hospitalization)
  Sender: FDA-Public Use
  Company Number: US-ACTELION-A-NJ2018-167849

PATIENT
  Age: 70 Year
  Sex: Female
  Weight: 43.99 kg

DRUGS (1)
  1. VELETRI [Suspect]
     Active Substance: EPOPROSTENOL
     Indication: PULMONARY HYPERTENSION
     Dosage: 60 NG/KG, PER MIN
     Route: 042

REACTIONS (11)
  - Diarrhoea [Unknown]
  - Emergency care [Unknown]
  - Hyponatraemia [Unknown]
  - Memory impairment [Unknown]
  - Condition aggravated [Unknown]
  - Oedema peripheral [Unknown]
  - Unresponsive to stimuli [Unknown]
  - Pneumonia [Unknown]
  - Dyspnoea [Unknown]
  - Hypothermia [Unknown]
  - Delirium [Unknown]

NARRATIVE: CASE EVENT DATE: 20180904
